FAERS Safety Report 9408902 (Version 2)
Quarter: 2013Q3

REPORT INFORMATION
  Report Type: Report from Study
  Country: US (occurrence: US)
  Receive Date: 20130719
  Receipt Date: 20130823
  Transmission Date: 20140515
  Serious: Yes (Hospitalization)
  Sender: FDA-Public Use
  Company Number: US-ALEXION-A201301626

PATIENT
  Age: 24 Year
  Sex: Female

DRUGS (37)
  1. ECULIZUMAB [Suspect]
     Indication: HAEMOLYTIC URAEMIC SYNDROME
     Route: 042
  2. CELLCEPT [Concomitant]
     Indication: RENAL TRANSPLANT
     Dosage: 500 MG, BID
     Route: 042
     Dates: start: 2009, end: 201205
  3. CELLCEPT [Concomitant]
     Dosage: 250 MG, BID
     Route: 042
  4. ACETAMINOPHEN [Concomitant]
     Indication: PYREXIA
     Dosage: 650 MG, QID/A6H, PRN
     Route: 048
  5. COREG [Concomitant]
     Indication: HYPERTENSION
     Dosage: 1.5625 MG, BID
     Route: 048
  6. CINACALCET [Concomitant]
     Dosage: 60 MG, QD
     Route: 048
  7. CELEXA [Concomitant]
     Indication: DEPRESSION
     Dosage: 20 MG, QD
     Route: 048
  8. CLONIDINE [Concomitant]
     Indication: HYPERTENSION
     Dosage: 0.3 MG, TID
     Route: 048
  9. DILTIAZEM [Concomitant]
     Indication: HYPERTENSION
     Dosage: 360 MG, QD
     Route: 048
  10. BENADRYL [Concomitant]
     Indication: PRURITUS
     Dosage: 25 MG, QID, PRN
     Route: 048
  11. BENADRYL [Concomitant]
     Dosage: 12.5 MG, QID, PRN
     Route: 042
  12. HYDROCODONE W/ACETAMINOPHEN [Concomitant]
     Indication: PAIN
     Dosage: 10/325 MG Q6H, PRN
     Route: 048
  13. DILAUDID [Concomitant]
     Indication: PAIN
     Dosage: 2 MG, SINGLE
     Route: 042
  14. DILAUDID [Concomitant]
     Dosage: 0.5 MG, QID, PRN
     Route: 042
  15. LEVAQUIN [Concomitant]
     Dosage: 250 MG, UNK
     Route: 042
  16. ATIVAN [Concomitant]
     Indication: ANXIETY
     Dosage: 0.5 MG, TID, PRN
     Route: 048
  17. SOLUMEDROL [Concomitant]
     Indication: RENAL TRANSPLANT
     Dosage: 10 MG, QD
     Route: 042
  18. REGLAN [Concomitant]
     Indication: NAUSEA
     Dosage: 5 MG, BEFORE MEALS
     Route: 042
  19. REGLAN [Concomitant]
     Indication: VOMITING
  20. MINOXIDIL [Concomitant]
     Indication: HYPERTENSION
     Dosage: 2.5 MG, BID
     Route: 048
  21. ZOFRAN [Concomitant]
     Indication: NAUSEA
     Dosage: 4 MG, QID, PRN
     Route: 042
  22. ZOFRAN [Concomitant]
     Indication: VOMITING
  23. PROTONIX [Concomitant]
     Indication: GASTROOESOPHAGEAL REFLUX DISEASE
     Dosage: 40 MG, QD
     Route: 042
  24. PHENERGAN [Concomitant]
     Indication: NAUSEA
     Dosage: 12.5 MG, QID, PRN
     Route: 042
  25. PHENERGAN [Concomitant]
     Indication: VOMITING
  26. PROGRAF [Concomitant]
     Indication: RENAL TRANSPLANT
     Dosage: 3 MG, BID
     Route: 060
  27. PROGRAF [Concomitant]
     Dosage: 2 MG, SINGLE
     Route: 042
  28. PROGRAF [Concomitant]
     Dosage: 3 MG, BID
     Route: 048
  29. VALCYTE [Concomitant]
     Indication: PROPHYLAXIS
     Dosage: 450 MG, QD
     Route: 048
  30. DIOVAN [Concomitant]
     Indication: HYPERTENSION
     Dosage: 160 MG, QD
     Route: 048
  31. VANCOMYCIN [Concomitant]
     Dosage: 1000 MG, UNK
     Route: 042
  32. AMBIEN [Concomitant]
     Indication: INSOMNIA
     Dosage: 10 MG, QD AT NIGHT
     Route: 048
  33. DIATRIZOATE SODIUM W/MEGLUMINE DIATRIZOATE [Concomitant]
     Dosage: 20 MG, SINGLE
     Route: 048
  34. NORVASC [Concomitant]
     Indication: HYPERTENSION
     Dosage: 5 MG, QD
     Route: 048
  35. MAGNESIUM SULFATE [Concomitant]
     Dosage: 2 G, SINGLE
     Route: 042
  36. DULCOLAX [Concomitant]
     Indication: CONSTIPATION
     Dosage: 10 MG, PRN
     Route: 048
  37. MIRALAX [Concomitant]
     Indication: CONSTIPATION
     Dosage: 17 G, PRN
     Route: 048

REACTIONS (1)
  - Gastroenteritis [Recovered/Resolved]
